FAERS Safety Report 7971341-6 (Version None)
Quarter: 2011Q4

REPORT INFORMATION
  Report Type: 
  Country: None (occurrence: None)
  Receive Date: 20111212
  Receipt Date: 20111205
  Transmission Date: 20120403
  Serious: Yes (Hospitalization, Other)
  Sender: FDA-Public Use
  Company Number: JP-PFIZER INC-2011187540

PATIENT
  Age: 75 Year
  Sex: Female
  Weight: 54 kg

DRUGS (5)
  1. ZYVOX [Suspect]
     Dosage: 600 MG, 1X/DAY
     Route: 048
     Dates: start: 20110905, end: 20110905
  2. ZYVOX [Suspect]
     Indication: C-REACTIVE PROTEIN DECREASED
     Dosage: 1200 MG, 2X/DAY
     Route: 048
     Dates: start: 20110816, end: 20110829
  3. SULFAMETHOXAZOLE AND TRIMETHOPRIM [Concomitant]
     Indication: C-REACTIVE PROTEIN INCREASED
     Dosage: UNK
     Route: 048
     Dates: start: 20110829, end: 20110906
  4. ZYVOX [Suspect]
     Indication: ARTHRITIS
     Dosage: 300 MG, 2X/DAY
     Route: 058
     Dates: start: 20110809, end: 20110816
  5. ZYVOX [Suspect]
     Dosage: 1200 MG, 2X/DAY
     Route: 048
     Dates: start: 20110906, end: 20111003

REACTIONS (4)
  - NAUSEA [None]
  - VOMITING [None]
  - RENAL IMPAIRMENT [None]
  - DECREASED APPETITE [None]
